FAERS Safety Report 7322534-2 (Version None)
Quarter: 2011Q1

REPORT INFORMATION
  Report Type: 
  Country: None (occurrence: None)
  Receive Date: 20110215
  Receipt Date: 20110202
  Transmission Date: 20110831
  Serious: Yes (Hospitalization, Other)
  Sender: FDA-Public Use
  Company Number: 026687

PATIENT
  Sex: Male
  Weight: 4.8 kg

DRUGS (6)
  1. KEPPRA [Suspect]
     Indication: PARTIAL SEIZURES
     Dosage: SEE IMAGE
     Route: 042
     Dates: start: 20110119, end: 20110126
  2. KEPPRA [Suspect]
     Indication: CEREBRAL INFARCTION
     Dosage: SEE IMAGE
     Route: 042
     Dates: start: 20110119, end: 20110126
  3. KEPPRA [Suspect]
     Indication: PARTIAL SEIZURES
     Dosage: SEE IMAGE
     Route: 042
     Dates: start: 20110117, end: 20110119
  4. KEPPRA [Suspect]
     Indication: CEREBRAL INFARCTION
     Dosage: SEE IMAGE
     Route: 042
     Dates: start: 20110117, end: 20110119
  5. KEPPRA [Suspect]
     Indication: PARTIAL SEIZURES
     Dosage: SEE IMAGE
     Route: 042
     Dates: start: 20110126, end: 20110127
  6. KEPPRA [Suspect]
     Indication: CEREBRAL INFARCTION
     Dosage: SEE IMAGE
     Route: 042
     Dates: start: 20110126, end: 20110127

REACTIONS (6)
  - RASH MACULAR [None]
  - DISSEMINATED INTRAVASCULAR COAGULATION [None]
  - GRANULOCYTOPENIA [None]
  - THROMBOCYTOPENIA [None]
  - TRANSAMINASES INCREASED [None]
  - VIRAL INFECTION [None]
